FAERS Safety Report 24753274 (Version 1)
Quarter: 2024Q4

REPORT INFORMATION
  Report Type: Report from Study
  Country: EG (occurrence: EG)
  Receive Date: 20241219
  Receipt Date: 20241219
  Transmission Date: 20250115
  Serious: Yes (Other)
  Sender: NOVARTIS
  Company Number: EG-002147023-NVSC2024EG234258

PATIENT
  Age: 57 Year
  Sex: Female
  Weight: 90 kg

DRUGS (3)
  1. KISQALI [Suspect]
     Active Substance: RIBOCICLIB
     Indication: Breast cancer metastatic
     Dosage: 3 TABS (200 MG) ONCE DAILY FOR 3 WEEKS AND ONE WEEK OFF
     Route: 048
     Dates: start: 202409, end: 202412
  2. Cal Mag [Concomitant]
     Indication: Mineral supplementation
     Dosage: 1 DOSAGE FORM, QD
     Route: 048
     Dates: start: 2021
  3. Cal Mag [Concomitant]
     Indication: Breast cancer metastatic

REACTIONS (4)
  - Tachycardia [Recovering/Resolving]
  - Dyspnoea [Recovering/Resolving]
  - Decreased immune responsiveness [Recovered/Resolved]
  - Anaemia [Recovering/Resolving]

NARRATIVE: CASE EVENT DATE: 20241001
